FAERS Safety Report 11995380 (Version 1)
Quarter: 2016Q1

REPORT INFORMATION
  Report Type: Spontaneous
  Country: US (occurrence: US)
  Receive Date: 20160203
  Receipt Date: 20160203
  Transmission Date: 20160526
  Serious: Yes (Other)
  Sender: FDA-Public Use
  Company Number: US-SMITH AND NEPHEW, INC-2016SMT00076

PATIENT
  Age: 46 Year
  Sex: Female
  Weight: 87.75 kg

DRUGS (12)
  1. MULTIVITAMIN [Concomitant]
     Active Substance: VITAMINS
     Dosage: UNK, 1X/DAY
  2. IRON SUPPLEMENT [Concomitant]
     Active Substance: IRON
     Dosage: UNK, 1X/DAY
  3. LYRICA [Concomitant]
     Active Substance: PREGABALIN
     Dosage: UNK, 1X/DAY
  4. METANX [Concomitant]
     Active Substance: LEVOMEFOLATE CALCIUM\METHYLCOBALAMIN\PYRIDOXAL PHOSPHATE ANHYDROUS
     Dosage: UNK, 2X/DAY
  5. REGRANEX [Suspect]
     Active Substance: BECAPLERMIN
     Indication: DIABETIC FOOT
     Dosage: UNK UNK, 1X/DAY
     Route: 061
     Dates: start: 20151224, end: 20160122
  6. LEVOTHYROXINE. [Concomitant]
     Active Substance: LEVOTHYROXINE
     Dosage: UNK, 1X/DAY
  7. CITALOPRAM [Concomitant]
     Active Substance: CITALOPRAM HYDROBROMIDE
     Dosage: UNK, 1X/DAY
  8. SULFURZYME [Concomitant]
     Dosage: UNK, 2X/DAY
  9. METFORMIN [Concomitant]
     Active Substance: METFORMIN HYDROCHLORIDE
     Dosage: UNK, 2X/DAY
  10. ARIPIPRAZOLE. [Concomitant]
     Active Substance: ARIPIPRAZOLE
     Dosage: UNK, 1X/DAY
  11. LIMBREL [Concomitant]
     Active Substance: FLAVOCOXID
     Dosage: UNK, 1X/DAY
  12. VITAMIN B2 [Concomitant]
     Active Substance: RIBOFLAVIN
     Dosage: UNK, 1X/DAY

REACTIONS (3)
  - Wound infection pseudomonas [Unknown]
  - Application site discolouration [Unknown]
  - Wound infection staphylococcal [Unknown]

NARRATIVE: CASE EVENT DATE: 20160119
